FAERS Safety Report 9749958 (Version 3)
Quarter: 2013Q4

REPORT INFORMATION
  Report Type: Spontaneous
  Country: US (occurrence: US)
  Receive Date: 20131212
  Receipt Date: 20131224
  Transmission Date: 20140711
  Serious: Yes (Other)
  Sender: FDA-Public Use
  Company Number: PHEH2013US025579

PATIENT
  Age: 68 Year
  Sex: Female
  Weight: 77.98 kg

DRUGS (20)
  1. DIOVAN [Suspect]
     Indication: HYPERTENSION
     Dosage: 160 MG, QD
     Route: 048
     Dates: end: 20131216
  2. GLAUCOSTAT /USA/ [Suspect]
     Indication: ABNORMAL FAECES
     Dosage: UNK UKN, PRN (AS NEEDED)
  3. REGLAN /USA/ [Suspect]
     Indication: GASTROOESOPHAGEAL REFLUX DISEASE
     Dosage: UNK UKN, UNK
  4. LIPOFLAVONOID [Suspect]
     Indication: TINNITUS
     Dosage: UNK UKN, TID
  5. PREMARIN [Suspect]
     Indication: VULVOVAGINAL PAIN
     Dosage: UNK UKN, TWO TIMES PER WEEK
     Route: 067
     Dates: end: 201311
  6. METFORMIN [Concomitant]
     Indication: DIABETES MELLITUS
     Dosage: UNK UKN, QID
  7. METFORMIN [Concomitant]
     Dosage: UNK UKN, BID
  8. SIMVASTATIN [Concomitant]
     Indication: BLOOD CHOLESTEROL ABNORMAL
     Dosage: 20 MG, QD
  9. LANTUS [Concomitant]
     Indication: DIABETES MELLITUS
     Dosage: UNK UKN, DAILY
  10. LEVOTHYROXINE [Concomitant]
     Indication: THYROID DISORDER
     Dosage: 75 MG, QD
  11. ASPIRIN [Concomitant]
     Indication: PROPHYLAXIS
     Dosage: 81 MG, QD
  12. CENTRUM SILVER [Concomitant]
     Dosage: UNK UKN, UNK
  13. FIBER LAX [Concomitant]
     Dosage: 625 MG, BID
  14. PRILOSEC [Concomitant]
     Dosage: UNK UKN, UNK
  15. NOVOLOG [Concomitant]
     Indication: DIABETES MELLITUS
     Dosage: UNK UKN, UNK
  16. DOCUSATE SODIUM [Concomitant]
     Dosage: UNK UKN, UNK
  17. OMEPRAZOLE [Concomitant]
     Dosage: 20 MG, QD
  18. FAMOTIDINE [Concomitant]
     Dosage: UNK UKN, AT BEDTIME
  19. MIRTAZAPINE [Concomitant]
     Dosage: 15 MG, QD
  20. AMITIZA [Concomitant]
     Dosage: 8 MG, QD

REACTIONS (23)
  - Colitis [Unknown]
  - Panic attack [Unknown]
  - Weight decreased [Unknown]
  - Feeling abnormal [Unknown]
  - Vulvovaginal burning sensation [Not Recovered/Not Resolved]
  - Vulvovaginal discomfort [Unknown]
  - Vulvovaginal dryness [Unknown]
  - Vulvovaginal pain [Not Recovered/Not Resolved]
  - Dysuria [Unknown]
  - Gastrointestinal disorder [Unknown]
  - Oral discomfort [Recovering/Resolving]
  - Tongue disorder [Recovering/Resolving]
  - Malaise [Unknown]
  - Bruxism [Unknown]
  - Hyperhidrosis [Unknown]
  - Muscular weakness [Unknown]
  - Dyspnoea [Unknown]
  - Headache [Unknown]
  - Abdominal pain [Not Recovered/Not Resolved]
  - Dizziness [Unknown]
  - Dizziness postural [Unknown]
  - Asthenia [Unknown]
  - Hypotension [Unknown]
